FAERS Safety Report 4279960-8 (Version None)
Quarter: 2004Q1

REPORT INFORMATION
  Report Type: 
  Country: None (occurrence: None)
  Receive Date: 20040126
  Receipt Date: 20031205
  Transmission Date: 20041129
  Serious: Yes (Hospitalization)
  Sender: FDA-Public Use
  Company Number: 863#1#2003-00018

PATIENT
  Age: 80 Year
  Sex: Female

DRUGS (2)
  1. IDROLAX (MACROGOL) [Suspect]
     Indication: CONSTIPATION
     Dosage: 1.7 TO 8 SACHETS AS A SINGLE DOSE ORAL
     Route: 048
     Dates: start: 20030806, end: 20030806
  2. STILNOX (ZOLPIDEM) [Concomitant]
     Route: 048

REACTIONS (4)
  - DEPRESSED LEVEL OF CONSCIOUSNESS [None]
  - INTENTIONAL OVERDOSE [None]
  - MULTIPLE DRUG OVERDOSE [None]
  - SUICIDE ATTEMPT [None]
